FAERS Safety Report 16874020 (Version 1)
Quarter: 2019Q4

REPORT INFORMATION
  Report Type: Spontaneous
  Country: US (occurrence: US)
  Receive Date: 20191001
  Receipt Date: 20191001
  Transmission Date: 20200122
  Serious: No
  Sender: FDA-Public Use
  Company Number: US-009507513-1909USA009029

PATIENT
  Age: 37 Year
  Sex: Female

DRUGS (6)
  1. ESTRADIOL. [Concomitant]
     Active Substance: ESTRADIOL
  2. FLUTICASONE. [Concomitant]
     Active Substance: FLUTICASONE
  3. PREPLUS B12 [Concomitant]
  4. ENDOMETRIN [Concomitant]
     Active Substance: PROGESTERONE
  5. PREGNYL [Suspect]
     Active Substance: CHORIOGONADOTROPIN ALFA
     Indication: INFERTILITY
     Dosage: 15000 UNITS AS DIRECTED
     Route: 058
     Dates: start: 20190809, end: 201909
  6. ENOXAPARIN SODIUM. [Concomitant]
     Active Substance: ENOXAPARIN SODIUM

REACTIONS (1)
  - Vaginal discharge [Unknown]

NARRATIVE: CASE EVENT DATE: 20190809
